FAERS Safety Report 6498113-6 (Version None)
Quarter: 2009Q4

REPORT INFORMATION
  Report Type: 
  Country: None (occurrence: None)
  Receive Date: 20091215
  Receipt Date: 20091202
  Transmission Date: 20100525
  Serious: Yes (Hospitalization)
  Sender: FDA-Public Use
  Company Number: US-ELI_LILLY_AND_COMPANY-US200909005546

PATIENT
  Sex: Female

DRUGS (5)
  1. CYMBALTA [Suspect]
     Indication: DEPRESSION
     Dosage: 60 MG, DAILY (1/D)
     Route: 065
     Dates: start: 20090201, end: 20091028
  2. FLEXERIL [Concomitant]
     Dosage: 5 MG, DAILY (1/D)
     Route: 065
  3. CLONAZEPAM [Concomitant]
     Dosage: 0.5 MG, 2/D
     Route: 065
  4. TRAZODONE HCL [Concomitant]
     Dosage: 50 MG, EACH EVENING
     Route: 065
  5. IBUPROFEN [Concomitant]
     Dosage: 600 MG, DAILY (1/D)
     Route: 065

REACTIONS (2)
  - NECK PAIN [None]
  - RADICULITIS [None]
